FAERS Safety Report 10149498 (Version 4)
Quarter: 2014Q2

REPORT INFORMATION
  Report Type: Spontaneous
  Country: US (occurrence: US)
  Receive Date: 20140502
  Receipt Date: 20140618
  Transmission Date: 20141212
  Serious: Yes (Death, Hospitalization)
  Sender: FDA-Public Use
  Company Number: US-PFIZER INC-2014117561

PATIENT
  Age: 54 Year
  Sex: Male

DRUGS (3)
  1. XALKORI [Suspect]
     Indication: LUNG NEOPLASM MALIGNANT
     Dosage: 250 MG, UNK
     Dates: start: 20140128
  2. XALKORI [Suspect]
     Dosage: 250 MG, 2X/DAY
     Dates: start: 20140129
  3. XALKORI [Suspect]
     Dosage: UNK
     Route: 048
     Dates: start: 201402, end: 201404

REACTIONS (3)
  - Osteomyelitis [Fatal]
  - Sepsis [Fatal]
  - General physical health deterioration [Unknown]
